FAERS Safety Report 12626975 (Version 1)
Quarter: 2016Q3

REPORT INFORMATION
  Report Type: Spontaneous
  Country: AU (occurrence: AU)
  Receive Date: 20160805
  Receipt Date: 20160805
  Transmission Date: 20161109
  Serious: Yes (Hospitalization)
  Sender: FDA-Public Use
  Company Number: AU-ECLAT PHARMACEUTICALS-2016ECL00016

PATIENT
  Sex: Male

DRUGS (2)
  1. PARIET [Suspect]
     Active Substance: RABEPRAZOLE SODIUM
     Dosage: UNK
     Route: 048
     Dates: start: 201411, end: 20160711
  2. ASPIRIN. [Concomitant]
     Active Substance: ASPIRIN

REACTIONS (9)
  - Muscular weakness [Unknown]
  - Cardiac disorder [Unknown]
  - Rhinorrhoea [Unknown]
  - Cough [Unknown]
  - Oropharyngeal pain [Unknown]
  - Chest pain [Unknown]
  - Insomnia [Recovering/Resolving]
  - Pollakiuria [Unknown]
  - Palpitations [Unknown]
